FAERS Safety Report 19465232 (Version 1)
Quarter: 2021Q2

REPORT INFORMATION
  Report Type: Report from Study
  Country: US (occurrence: US)
  Receive Date: 20210624
  Receipt Date: 20210624
  Transmission Date: 20210717
  Serious: Yes (Other)
  Sender: FDA-Public Use
  Company Number: NVSC2021US133890

PATIENT
  Age: 44 Year
  Sex: Female

DRUGS (1)
  1. ENTRESTO [Suspect]
     Active Substance: SACUBITRIL\VALSARTAN
     Indication: THROMBOSIS
     Dosage: 50 (24/26) MG, BID
     Route: 048
     Dates: start: 20210604

REACTIONS (2)
  - Thrombosis [Unknown]
  - Product use in unapproved indication [Unknown]

NARRATIVE: CASE EVENT DATE: 20210604
